FAERS Safety Report 11109470 (Version 1)
Quarter: 2015Q2

REPORT INFORMATION
  Report Type: Spontaneous
  Country: US (occurrence: US)
  Receive Date: 20150513
  Receipt Date: 20150513
  Transmission Date: 20150821
  Serious: No
  Sender: FDA-Public Use
  Company Number: US-009507513-1505USA001407

PATIENT
  Age: 22 Year
  Sex: Female
  Weight: 104.31 kg

DRUGS (1)
  1. IMPLANON [Suspect]
     Active Substance: ETONOGESTREL
     Indication: CONTRACEPTION
     Dosage: AN IMPLANON ROD, IN LEFT ARM
     Route: 059
     Dates: start: 2012, end: 20150129

REACTIONS (3)
  - Amenorrhoea [Unknown]
  - Papilloma viral infection [Unknown]
  - Oligomenorrhoea [Unknown]

NARRATIVE: CASE EVENT DATE: 2012
